FAERS Safety Report 5588064-3 (Version None)
Quarter: 2008Q1

REPORT INFORMATION
  Report Type: 
  Country: None (occurrence: None)
  Receive Date: 20080111
  Receipt Date: 20071228
  Transmission Date: 20080703
  Serious: Yes (Hospitalization)
  Sender: FDA-Public Use
  Company Number: IT-PFIZER INC-2008000039

PATIENT
  Sex: Female

DRUGS (3)
  1. FARLUTAL [Suspect]
     Indication: AMENORRHOEA
     Dosage: DAILY DOSE:10MG-TEXT:DAILY
     Dates: start: 20060101, end: 20071119
  2. ETORICOXIB [Suspect]
     Indication: BACK PAIN
     Dosage: TEXT:1 UNIT DOSE DAILY
     Route: 048
     Dates: start: 20071113, end: 20071119
  3. SUCRALFATE [Concomitant]
     Route: 048
     Dates: start: 20071113, end: 20071119

REACTIONS (2)
  - DYSPNOEA [None]
  - GENERALISED OEDEMA [None]
